FAERS Safety Report 10450627 (Version 2)
Quarter: 2014Q4

REPORT INFORMATION
  Report Type: Spontaneous
  Country: FR (occurrence: FR)
  Receive Date: 20140912
  Receipt Date: 20141106
  Transmission Date: 20150528
  Serious: Yes (Hospitalization, Other)
  Sender: FDA-Public Use
  Company Number: FR-BRISTOL-MYERS SQUIBB COMPANY-21370325

PATIENT
  Age: 75 Year
  Sex: Female

DRUGS (4)
  1. MARAVIROC [Concomitant]
     Active Substance: MARAVIROC
  2. NORVIR [Concomitant]
     Active Substance: RITONAVIR
  3. CRESTOR [Concomitant]
     Active Substance: ROSUVASTATIN CALCIUM
  4. REYATAZ [Suspect]
     Active Substance: ATAZANAVIR SULFATE
     Indication: ACQUIRED IMMUNODEFICIENCY SYNDROME
     Route: 048
     Dates: start: 20100615, end: 20140409

REACTIONS (3)
  - Liver abscess [Unknown]
  - Cholangitis [Unknown]
  - Cholelithiasis obstructive [Recovering/Resolving]

NARRATIVE: CASE EVENT DATE: 20140314
